FAERS Safety Report 11055452 (Version 1)
Quarter: 2015Q2

REPORT INFORMATION
  Report Type: Spontaneous
  Country: US (occurrence: None)
  Receive Date: 20150421
  Receipt Date: 20150421
  Transmission Date: 20150821
  Serious: Yes (Hospitalization)
  Sender: FDA-Public Use
  Company Number: None

PATIENT
  Age: 68 Year
  Sex: Male
  Weight: 98.9 kg

DRUGS (1)
  1. PROPOFOL. [Suspect]
     Active Substance: PROPOFOL
     Indication: SURGERY
     Route: 042
     Dates: start: 20150203, end: 20150203

REACTIONS (6)
  - Cerebrovascular accident [None]
  - Posturing [None]
  - Unresponsive to stimuli [None]
  - Seizure [None]
  - Blood pressure decreased [None]
  - Grunting [None]

NARRATIVE: CASE EVENT DATE: 20150203
